APPROVED DRUG PRODUCT: PRAMIPEXOLE DIHYDROCHLORIDE
Active Ingredient: PRAMIPEXOLE DIHYDROCHLORIDE
Strength: 0.75MG
Dosage Form/Route: TABLET;ORAL
Application: A090764 | Product #001
Applicant: NATCO PHARMA LTD
Approved: Apr 9, 2010 | RLD: No | RS: No | Type: DISCN